FAERS Safety Report 5157366-7 (Version None)
Quarter: 2006Q4

REPORT INFORMATION
  Report Type: 
  Country: None (occurrence: None)
  Receive Date: 20061127
  Receipt Date: 20061120
  Transmission Date: 20070319
  Serious: Yes (Hospitalization)
  Sender: FDA-Public Use
  Company Number: FR-AVENTIS-200614094FR

PATIENT
  Age: 85 Year
  Sex: Female

DRUGS (15)
  1. LOVENOX [Suspect]
     Route: 058
     Dates: start: 20061012, end: 20061014
  2. RAPIFEN                            /00676302/ [Concomitant]
     Indication: ANAESTHESIA
     Route: 042
     Dates: start: 20061012, end: 20061012
  3. DIPRIVAN [Concomitant]
     Indication: ANAESTHESIA
     Route: 042
     Dates: start: 20061012, end: 20061012
  4. SPASFON                            /00934601/ [Concomitant]
     Route: 042
     Dates: start: 20061012, end: 20061012
  5. ACETAMINOPHEN [Concomitant]
     Route: 042
     Dates: start: 20061012, end: 20061012
  6. CLAMOXYL                           /00249601/ [Concomitant]
     Indication: ANTIBIOTIC PROPHYLAXIS
     Dates: start: 20061012, end: 20061012
  7. GENTAMICIN [Concomitant]
     Indication: ANTIBIOTIC PROPHYLAXIS
     Dates: start: 20061012, end: 20061012
  8. ROCEPHINE                          /00672201/ [Concomitant]
     Dates: start: 20061012, end: 20061012
  9. TOPALGIC [Concomitant]
     Dates: start: 20061013, end: 20061013
  10. VASTAREL [Concomitant]
     Route: 048
  11. ACTONEL [Concomitant]
     Route: 048
  12. MOVICOL                            /01053601/ [Concomitant]
     Route: 048
  13. LEXOMIL [Concomitant]
     Route: 048
  14. DEROXAT [Concomitant]
     Route: 048
  15. OMEPRAZOLE [Concomitant]
     Route: 048

REACTIONS (1)
  - RASH MORBILLIFORM [None]
